FAERS Safety Report 4882621-5 (Version None)
Quarter: 2006Q1

REPORT INFORMATION
  Report Type: 
  Country: None (occurrence: None)
  Receive Date: 20060117
  Receipt Date: 20050920
  Transmission Date: 20060701
  Serious: Yes (Hospitalization)
  Sender: FDA-Public Use
  Company Number: US-MERCK-0509USA03009

PATIENT
  Age: 66 Year
  Sex: Female
  Weight: 57 kg

DRUGS (1)
  1. VIOXX [Suspect]
     Indication: RHEUMATOID ARTHRITIS
     Route: 048
     Dates: start: 20000101, end: 20041001

REACTIONS (20)
  - ANAEMIA [None]
  - ASTHENIA [None]
  - CARDIOMEGALY [None]
  - CHRONIC OBSTRUCTIVE PULMONARY DISEASE [None]
  - DEEP VEIN THROMBOSIS [None]
  - HAEMODYNAMIC INSTABILITY [None]
  - HAEMORRHOIDS [None]
  - HIATUS HERNIA [None]
  - HYPOXIA [None]
  - LEUKOCYTOSIS [None]
  - LUNG DISORDER [None]
  - LUNG INFILTRATION [None]
  - MYOCARDIAL INFARCTION [None]
  - OCCULT BLOOD POSITIVE [None]
  - OESOPHAGEAL ULCER [None]
  - OESOPHAGITIS ULCERATIVE [None]
  - PNEUMONIA [None]
  - PULMONARY EMBOLISM [None]
  - SINUS TACHYCARDIA [None]
  - WEIGHT DECREASED [None]
